FAERS Safety Report 9302570 (Version 1)
Quarter: 2013Q2

REPORT INFORMATION
  Report Type: Report from Study
  Country: US (occurrence: None)
  Receive Date: 20130516
  Receipt Date: 20130516
  Transmission Date: 20140414
  Serious: Yes (Hospitalization)
  Sender: FDA-Public Use
  Company Number: ACO_35968_2013

PATIENT
  Age: 49 Year
  Sex: Female
  Weight: 90.7 kg

DRUGS (14)
  1. AMPYRA (DALFAMPRIDINE) TABLET, 10MG [Suspect]
     Indication: MULTIPLE SCLEROSIS
     Route: 048
     Dates: start: 201205
  2. AMPYRA (DALFAMPRIDINE) TABLET, 10MG [Suspect]
     Indication: GAIT DISTURBANCE
     Route: 048
     Dates: start: 201205
  3. SIMVASTATIN (SIMVASTATIN) [Concomitant]
  4. TYSABRI (NATILZUMAB) [Concomitant]
  5. ASPIRIN (ACETYLSALICYLIC ACID) [Concomitant]
  6. LEXAPRO (ESCITALOPRAM OXALATE) [Concomitant]
  7. SANCTURA (TROSPIUM CHLORIDE) [Concomitant]
  8. CELBREX (CELECOXIB) [Concomitant]
  9. GABAPENTIN (GABAPENTIN) [Concomitant]
  10. VITAMIN B COMPLEX (CALCIUM PANTOTHENATE, NICOTINAMIDE, PYRIDOXINE HYDROCHLORIDE, RIBOFLAVIN, THIAMINE HYDROCHLORIDE) [Concomitant]
  11. VITAMINE E (TOCOPHERYL ACETATE) [Concomitant]
  12. RANITIDINE (RANITIDINE HYDROCHLORIDE) [Concomitant]
  13. CALTRATE + D (CALCIUM CARBONATE, COLECALIFEROL) [Concomitant]
  14. CENTRUM (ASCORBIC ACID, BIOTIN, CALCIUM PANTOTHENATE, CYANOCOBALAMIN, ERGOCALCIFEROL, IRON, NICOTINAMIDE, PYRIDOXINE HYDROCHLORIDE, RETINOL, RIBOFLAVIN, THIAMINE HYDROCHLORIDE, TOCOPHERYL ACETATE) [Concomitant]

REACTIONS (4)
  - Fall [None]
  - Walking aid user [None]
  - Balance disorder [None]
  - Spinal fracture [None]
